FAERS Safety Report 19752221 (Version 1)
Quarter: 2021Q3

REPORT INFORMATION
  Report Type: Spontaneous
  Country: BE (occurrence: BE)
  Receive Date: 20210827
  Receipt Date: 20210827
  Transmission Date: 20211014
  Serious: Yes (Hospitalization)
  Sender: FDA-Public Use
  Company Number: BE-UNICHEM PHARMACEUTICALS (USA) INC-UCM202108-000762

PATIENT
  Age: 33 Year
  Sex: Female

DRUGS (8)
  1. CLOZAPINE. [Concomitant]
     Active Substance: CLOZAPINE
     Indication: CATATONIA
  2. LORAZEPAM. [Suspect]
     Active Substance: LORAZEPAM
  3. LORAZEPAM. [Suspect]
     Active Substance: LORAZEPAM
     Indication: CATATONIA
     Route: 042
  4. ARIPIPRAZOLE. [Concomitant]
     Active Substance: ARIPIPRAZOLE
     Indication: CATATONIA
  5. DIVALPROEX SODIUM. [Suspect]
     Active Substance: DIVALPROEX SODIUM
     Indication: EPILEPSY
     Dosage: UNKNOWN
  6. ARIPIPRAZOLE. [Concomitant]
     Active Substance: ARIPIPRAZOLE
     Dosage: HALVED
  7. DIVALPROEX SODIUM. [Suspect]
     Active Substance: DIVALPROEX SODIUM
  8. LITHIUM. [Concomitant]
     Active Substance: LITHIUM
     Indication: CATATONIA

REACTIONS (3)
  - Stupor [Recovered/Resolved]
  - Drug interaction [Unknown]
  - Metabolic encephalopathy [Recovered/Resolved]
